FAERS Safety Report 4395489-0 (Version None)
Quarter: 2004Q3

REPORT INFORMATION
  Report Type: 
  Country: None (occurrence: None)
  Receive Date: 20040707
  Receipt Date: 20040622
  Transmission Date: 20050211
  Serious: Yes (Hospitalization)
  Sender: FDA-Public Use
  Company Number: I04-341-040

PATIENT
  Age: 55 Year
  Sex: Male

DRUGS (11)
  1. VELCADE [Suspect]
     Indication: MULTIPLE MYELOMA
     Dosage: 2.25 MG, INTRAVENOUS
     Route: 042
     Dates: start: 20040119, end: 20040217
  2. VELCADE [Suspect]
  3. EPREX [Concomitant]
  4. TARDYFERON [Concomitant]
  5. PREVISCAN [Concomitant]
  6. NOVOLOG [Concomitant]
  7. MIXTARD HUMAN 70/30 [Concomitant]
  8. XANAX [Concomitant]
  9. FOLIC ACID [Concomitant]
  10. MAGNE-B6 [Concomitant]
  11. ALKERAN [Concomitant]

REACTIONS (6)
  - CHOLECYSTITIS [None]
  - CHOLELITHIASIS [None]
  - CHOLESTASIS [None]
  - CYTOLYTIC HEPATITIS [None]
  - PANCREATITIS ACUTE [None]
  - PANCYTOPENIA [None]
